FAERS Safety Report 7374278-9 (Version None)
Quarter: 2011Q1

REPORT INFORMATION
  Report Type: 
  Country: None (occurrence: None)
  Receive Date: 20110316
  Receipt Date: 20110304
  Transmission Date: 20110831
  Serious: Yes (Other)
  Sender: FDA-Public Use
  Company Number: 028719

PATIENT
  Age: 80 Year
  Sex: Male

DRUGS (3)
  1. LACOSAMIDE [Suspect]
     Indication: STATUS EPILEPTICUS
     Dosage: (400 MG QD, 400 MG BOLUS INITIALLY, 400 MG DAILY THEREAFTER INTRAVENOUS (NOT OTHERWISE SPECIFIED)
     Route: 042
  2. LEVETIRACETAM [Suspect]
     Indication: STATUS EPILEPTICUS
     Dosage: (2 G BID INTRAVENOUS (NOT OTHERWISE SPECIFIED))
     Route: 042
  3. THEOPHYLLINE [Concomitant]

REACTIONS (3)
  - OFF LABEL USE [None]
  - CHRONIC OBSTRUCTIVE PULMONARY DISEASE [None]
  - MECHANICAL VENTILATION [None]
